FAERS Safety Report 10684591 (Version 4)
Quarter: 2015Q1

REPORT INFORMATION
  Report Type: Spontaneous
  Country: JP (occurrence: JP)
  Receive Date: 20141231
  Receipt Date: 20150325
  Transmission Date: 20150720
  Serious: Yes (Other)
  Sender: FDA-Public Use
  Company Number: PHHY2014JP167525

PATIENT
  Age: 11 Year
  Sex: Male

DRUGS (1)
  1. AFINITOR [Suspect]
     Active Substance: EVEROLIMUS
     Dosage: 10 MG, QD
     Route: 048
     Dates: start: 20130401

REACTIONS (1)
  - Metabolic acidosis [Recovered/Resolved]

NARRATIVE: CASE EVENT DATE: 20141218
